FAERS Safety Report 8583804-3 (Version None)
Quarter: 2012Q3

REPORT INFORMATION
  Report Type: 
  Country: None (occurrence: None)
  Receive Date: 20120810
  Receipt Date: 20120730
  Transmission Date: 20120928
  Serious: Yes (Hospitalization, Disabling, Other)
  Sender: FDA-Public Use
  Company Number: US-009507513-1203USA03306

PATIENT

DRUGS (12)
  1. FOSAMAX [Suspect]
     Dosage: 40 MG, UNK
     Route: 048
  2. FOSAMAX [Suspect]
     Dosage: 70 MG, QD
     Route: 048
     Dates: start: 20011205
  3. HYGROTON [Concomitant]
     Dosage: 25 MG, QD
  4. CALCIUM (UNSPECIFIED) [Concomitant]
     Indication: OSTEOPOROSIS
  5. ASPIRIN [Concomitant]
     Dosage: 325 MG, QD
  6. FEOSOL [Concomitant]
     Dosage: UNK, QD
  7. VITAMIN D [Concomitant]
     Indication: OSTEOPOROSIS
  8. FOSAMAX [Suspect]
     Indication: OSTEOPOROSIS
     Dosage: 70 MG, QW
     Route: 048
     Dates: start: 19980101, end: 20110401
  9. NIACIN [Concomitant]
     Dosage: 1000 MG, QD
  10. PROCARDIA XL [Concomitant]
     Dosage: 60 MG, QD
  11. LOPRESSOR [Concomitant]
     Dosage: 75 MG, BID
  12. FOSAMAX [Suspect]
     Dosage: 70 MG, UNK
     Route: 048
     Dates: start: 20091230, end: 20120602

REACTIONS (46)
  - LOW TURNOVER OSTEOPATHY [None]
  - CEREBROVASCULAR ACCIDENT [None]
  - VERTIGO [None]
  - DEEP VEIN THROMBOSIS [None]
  - OSTEOPENIA [None]
  - FACIAL BONES FRACTURE [None]
  - OSTEOPOROSIS [None]
  - OSTEOARTHRITIS [None]
  - TRANSIENT ISCHAEMIC ATTACK [None]
  - PHLEBITIS [None]
  - URINARY TRACT INFECTION [None]
  - BLOOD POTASSIUM ABNORMAL [None]
  - TREATMENT NONCOMPLIANCE [None]
  - DIZZINESS [None]
  - VIRAL INFECTION [None]
  - GASTRIC ULCER [None]
  - CAROTID BRUIT [None]
  - HEPATITIS [None]
  - OVERDOSE [None]
  - EAR DISORDER [None]
  - WOUND DRAINAGE [None]
  - MYOCARDIAL INFARCTION [None]
  - BREAST CANCER [None]
  - DEAFNESS NEUROSENSORY [None]
  - ASTHMA [None]
  - CHRONIC OBSTRUCTIVE PULMONARY DISEASE [None]
  - EXCORIATION [None]
  - HERPES ZOSTER [None]
  - CORONARY ARTERY DISEASE [None]
  - HYPERTHYROIDISM [None]
  - TOXIC NODULAR GOITRE [None]
  - DIABETES MELLITUS [None]
  - EPISTAXIS [None]
  - HYPOTHYROIDISM [None]
  - INAPPROPRIATE SCHEDULE OF DRUG ADMINISTRATION [None]
  - HYPERTENSION [None]
  - FALL [None]
  - CEREBROVASCULAR DISORDER [None]
  - FEMUR FRACTURE [None]
  - MULTIPLE FRACTURES [None]
  - CLOSTRIDIUM DIFFICILE COLITIS [None]
  - SPINAL OSTEOARTHRITIS [None]
  - DISLOCATION OF VERTEBRA [None]
  - BLOOD CHOLESTEROL INCREASED [None]
  - URINE LEUKOCYTE ESTERASE POSITIVE [None]
  - ARTHRALGIA [None]
